FAERS Safety Report 21627614 (Version 1)
Quarter: 2022Q4

REPORT INFORMATION
  Report Type: Spontaneous
  Country: FR (occurrence: FR)
  Receive Date: 20221122
  Receipt Date: 20221122
  Transmission Date: 20230113
  Serious: Yes (Hospitalization)
  Sender: FDA-Public Use
  Company Number: None

PATIENT
  Age: 47 Year
  Sex: Female
  Weight: 72 kg

DRUGS (1)
  1. MIRENA [Suspect]
     Active Substance: LEVONORGESTREL
     Indication: Contraception
     Dosage: 20?G/DAY
     Route: 015
     Dates: end: 20221026

REACTIONS (4)
  - Breast cancer [Not Recovered/Not Resolved]
  - Breast pain [Not Recovered/Not Resolved]
  - Breast discomfort [Not Recovered/Not Resolved]
  - Adnexa uteri pain [Not Recovered/Not Resolved]
